FAERS Safety Report 17077106 (Version 1)
Quarter: 2019Q4

REPORT INFORMATION
  Report Type: Spontaneous
  Country: US (occurrence: US)
  Receive Date: 20191126
  Receipt Date: 20191126
  Transmission Date: 20200122
  Serious: Yes (Other)
  Sender: FDA-Public Use
  Company Number: US-FRESENIUS KABI-FK201913080

PATIENT
  Age: 73 Year
  Sex: Female

DRUGS (8)
  1. BUPIVACAINE (MANUFACTURER UNKNOWN) [Suspect]
     Active Substance: BUPIVACAINE
     Indication: SPINAL ANAESTHESIA
     Dosage: 2,75 ML OF 0,5 PERCENT
     Route: 037
  2. PROPOFOL. [Concomitant]
     Active Substance: PROPOFOL
     Indication: SEDATIVE THERAPY
     Route: 065
  3. EPHEDRINE. [Concomitant]
     Active Substance: EPHEDRINE
     Indication: PROPHYLAXIS
     Route: 042
  4. FENTANYL (MANUFACTURER UNKNOWN) [Suspect]
     Active Substance: FENTANYL
     Route: 042
  5. CEFAZOLIN [Concomitant]
     Active Substance: CEFAZOLIN
     Indication: INFECTION PROPHYLAXIS
     Route: 042
  6. MORPHINE (MANUFACTURER UNKNOWN) [Suspect]
     Active Substance: MORPHINE
     Indication: SPINAL ANAESTHESIA
     Dosage: 0,2 MG
     Route: 037
  7. FENTANYL (MANUFACTURER UNKNOWN) [Suspect]
     Active Substance: FENTANYL
     Indication: ANALGESIC THERAPY
     Route: 042
  8. PROPOFOL. [Concomitant]
     Active Substance: PROPOFOL
     Route: 065

REACTIONS (2)
  - Anaemia [Recovered/Resolved]
  - Confusional state [Recovered/Resolved]
